FAERS Safety Report 15347626 (Version 2)
Quarter: 2018Q4

REPORT INFORMATION
  Report Type: Spontaneous
  Country: RU (occurrence: RU)
  Receive Date: 20180904
  Receipt Date: 20181010
  Transmission Date: 20190204
  Serious: Yes (Hospitalization)
  Sender: FDA-Public Use
  Company Number: RU-ASTRAZENECA-2017SF28957

PATIENT
  Age: 63 Year
  Sex: Female
  Weight: 93 kg

DRUGS (9)
  1. GLUCOPHAGE [Concomitant]
     Active Substance: METFORMIN HYDROCHLORIDE
  2. METOPROLOL. [Concomitant]
     Active Substance: METOPROLOL
  3. KETOROLAC [Concomitant]
     Active Substance: KETOROLAC\KETOROLAC TROMETHAMINE
  4. FORXIGA [Suspect]
     Active Substance: DAPAGLIFLOZIN
     Indication: TYPE 2 DIABETES MELLITUS
     Route: 048
     Dates: start: 201609
  5. WARFARIN [Concomitant]
     Active Substance: WARFARIN
  6. SOTAHEXAL [Concomitant]
     Active Substance: SOTALOL
  7. NOLIPREL [Concomitant]
  8. ATORIS [Concomitant]
     Active Substance: ATORVASTATIN CALCIUM
  9. AMLODIPINE [Concomitant]
     Active Substance: AMLODIPINE BESYLATE

REACTIONS (4)
  - Tonsillitis [Recovered/Resolved]
  - Somnolence [Not Recovered/Not Resolved]
  - Fatigue [Not Recovered/Not Resolved]
  - Paroxysmal arrhythmia [Not Recovered/Not Resolved]

NARRATIVE: CASE EVENT DATE: 201707
